FAERS Safety Report 8585652 (Version 2)
Quarter: 2013Q2

REPORT INFORMATION
  Report Type: Spontaneous
  Country: US (occurrence: US)
  Receive Date: 20120530
  Receipt Date: 20130528
  Transmission Date: 20140414
  Serious: Yes (Death)
  Sender: FDA-Public Use
  Company Number: US-GLAXOSMITHKLINE-A0958034A

PATIENT
  Age: 68 Year
  Sex: Female
  Weight: 36 kg

DRUGS (3)
  1. FLOLAN [Suspect]
     Indication: PULMONARY ARTERIAL HYPERTENSION
     Dosage: 106NGKM CONTINUOUS
     Route: 042
     Dates: start: 20040723, end: 20130507
  2. TRACLEER [Concomitant]
     Dosage: 125MG TWICE PER DAY
  3. REVATIO [Concomitant]

REACTIONS (12)
  - Death [Fatal]
  - Back pain [Not Recovered/Not Resolved]
  - Pain in extremity [Unknown]
  - Body temperature increased [Unknown]
  - Tenderness [Unknown]
  - Swelling [Unknown]
  - Device leakage [Unknown]
  - Medical device complication [Unknown]
  - Red blood cell count decreased [Not Recovered/Not Resolved]
  - Hospice care [Unknown]
  - Fatigue [Unknown]
  - Decreased interest [Unknown]
